FAERS Safety Report 5495252-3 (Version None)
Quarter: 2007Q4

REPORT INFORMATION
  Report Type: 
  Country: None (occurrence: None)
  Receive Date: 20071023
  Receipt Date: 20071008
  Transmission Date: 20080405
  Serious: Yes (Other)
  Sender: FDA-Public Use
  Company Number: 2007US001429

PATIENT
  Age: 54 Year
  Sex: Female
  Weight: 74.8 kg

DRUGS (2)
  1. AMEVIVE FOR IM(AMEVIVE FOR IM)(ALEFACET) INJECTION [Suspect]
     Dosage: INTRAMUSCULAR
     Route: 030
     Dates: start: 20030422, end: 20030717
  2. CHOLESTEROL- AND TRIGLYCERIDE REDUCERS [Concomitant]

REACTIONS (4)
  - CHEST DISCOMFORT [None]
  - CHEST PAIN [None]
  - DYSPNOEA [None]
  - PHARYNGITIS STREPTOCOCCAL [None]
